FAERS Safety Report 20757306 (Version 1)
Quarter: 2022Q2

REPORT INFORMATION
  Report Type: Spontaneous
  Country: US (occurrence: None)
  Receive Date: 20220427
  Receipt Date: 20220427
  Transmission Date: 20220721
  Serious: Yes (Death)
  Sender: FDA-Public Use
  Company Number: None

PATIENT
  Age: 61 Year
  Sex: Male
  Weight: 81 kg

DRUGS (1)
  1. LUMASON [Suspect]
     Active Substance: SULFUR HEXAFLUORIDE
     Indication: Cardiac imaging procedure
     Dosage: FREQUENCY : ONCE;?
     Route: 040
     Dates: start: 20220425

REACTIONS (3)
  - Flushing [None]
  - Dyspnoea [None]
  - Cardiac arrest [None]

NARRATIVE: CASE EVENT DATE: 20220425
